FAERS Safety Report 17070785 (Version 2)
Quarter: 2019Q4

REPORT INFORMATION
  Report Type: Spontaneous
  Country: DK (occurrence: DK)
  Receive Date: 20191125
  Receipt Date: 20191205
  Transmission Date: 20200122
  Serious: Yes (Life-Threatening, Hospitalization)
  Sender: FDA-Public Use
  Company Number: DK-ALYVANT THERAPEUTICS, INC.-2019ALY00017

PATIENT
  Sex: Female

DRUGS (2)
  1. BENDROFLUMETHIAZIDE-POTASSIUM CHLORIDE [Concomitant]
     Indication: HYPERTENSION
     Route: 065
  2. DESMOPRESSIN ACETATE. [Suspect]
     Active Substance: DESMOPRESSIN ACETATE
     Indication: NOCTURIA
     Dosage: 60 ?G, 1X/DAY
     Route: 065

REACTIONS (2)
  - Brain oedema [Recovered/Resolved]
  - Hyponatraemia [Recovered/Resolved]
